FAERS Safety Report 7555069-2 (Version None)
Quarter: 2011Q2

REPORT INFORMATION
  Report Type: 
  Country: None (occurrence: None)
  Receive Date: 20110610
  Receipt Date: 20110531
  Transmission Date: 20111010
  Serious: Yes (Hospitalization)
  Sender: FDA-Public Use
  Company Number: 1000020972

PATIENT
  Age: 90 Year
  Sex: Female

DRUGS (7)
  1. NEXIUM [Concomitant]
  2. BI PROFENID (KETOPROFEN) (KETOPROFEN) [Concomitant]
  3. ATHYMIL (MIANSERIN HYDROCHLORIDE) (MIANSERIN HYDROCHLORIDE) [Concomitant]
  4. MEMANTINE [Suspect]
     Indication: ABNORMAL BEHAVIOUR
     Dosage: ORAL
     Route: 048
     Dates: start: 20110415, end: 20110429
  5. CITALOPRAM HYDROBROMIDE [Concomitant]
  6. NOROXIN [Suspect]
     Indication: URINARY TRACT INFECTION
     Dosage: (2 IN 1 D)
  7. AMLODIPINE BESYLATE [Concomitant]

REACTIONS (3)
  - CONDITION AGGRAVATED [None]
  - ABNORMAL BEHAVIOUR [None]
  - OFF LABEL USE [None]
